FAERS Safety Report 9892519 (Version 2)
Quarter: 2014Q1

REPORT INFORMATION
  Report Type: Spontaneous
  Country: US (occurrence: US)
  Receive Date: 20140212
  Receipt Date: 20140320
  Transmission Date: 20141002
  Serious: Yes (Other)
  Sender: FDA-Public Use
  Company Number: US-BAXTER-2014BAX005729

PATIENT
  Sex: Female
  Weight: 107.9 kg

DRUGS (1)
  1. DIANEAL LOW CALCIUM [Suspect]
     Indication: PERITONEAL DIALYSIS
     Route: 033
     Dates: start: 20120625, end: 20140204

REACTIONS (3)
  - Staphylococcal infection [Not Recovered/Not Resolved]
  - Hernia [Unknown]
  - Catheter site infection [Not Recovered/Not Resolved]
